FAERS Safety Report 8441815-2 (Version None)
Quarter: 2012Q2

REPORT INFORMATION
  Report Type: 
  Country: None (occurrence: None)
  Receive Date: 20120323
  Receipt Date: 20110614
  Transmission Date: 20120825
  Serious: Yes (Other)
  Sender: FDA-Public Use
  Company Number: 163-21880-11062103

PATIENT
  Age: 77 Year
  Sex: Female

DRUGS (9)
  1. OMEPRAZOLE [Concomitant]
  2. SODIUM BICARBONATE IN PLASTIC CONTAINER [Concomitant]
  3. PLAVIX [Concomitant]
  4. DOXAZOSIN MESYLATE (DOXAZOSIN MESILATE) [Concomitant]
  5. PRAVASTATIN SODIUM [Concomitant]
  6. LENALIDOMIDE [Suspect]
     Indication: MULTIPLE MYELOMA
     Dosage: 15 MG, DAILY X 11 DAYS, PO
     Route: 048
     Dates: start: 20110517
  7. SODIUM CARBONATE ANHYDROUS (SODIUM CARBONATE ANHYDROUS) [Concomitant]
  8. NITROSTAT [Concomitant]
  9. ASPIRIN [Concomitant]

REACTIONS (2)
  - THROMBOSIS [None]
  - OEDEMA PERIPHERAL [None]
